FAERS Safety Report 18793055 (Version 2)
Quarter: 2021Q1

REPORT INFORMATION
  Report Type: Spontaneous
  Country: JP (occurrence: JP)
  Receive Date: 20210127
  Receipt Date: 20210219
  Transmission Date: 20210419
  Serious: Yes (Hospitalization, Other)
  Sender: FDA-Public Use
  Company Number: NVSJ2021JP001057

PATIENT
  Sex: Male

DRUGS (10)
  1. PREDNISOLONE. [Concomitant]
     Active Substance: PREDNISOLONE
     Dosage: 30 MG
     Route: 064
     Dates: start: 202006
  2. NEORAL [Suspect]
     Active Substance: CYCLOSPORINE
     Dosage: MATERNAL DOSE: 120 MG
     Route: 064
  3. FERROUS SODIUM CITRATE [Concomitant]
     Active Substance: SODIUM FERROUS CITRATE
     Indication: FOETAL EXPOSURE DURING PREGNANCY
     Dosage: MATERNAL DOSE: 100 MG
     Route: 064
     Dates: start: 202006, end: 202008
  4. NEORAL [Suspect]
     Active Substance: CYCLOSPORINE
     Dosage: MATERNAL DOSE: 200 MG
     Route: 064
  5. FEXOFENADINE [Concomitant]
     Active Substance: FEXOFENADINE HYDROCHLORIDE
     Indication: FOETAL EXPOSURE DURING PREGNANCY
     Dosage: MATERNAL DOSE: 120 MG
     Route: 064
     Dates: start: 202006, end: 202008
  6. CALCIUM LACTATE [Concomitant]
     Active Substance: CALCIUM LACTATE
     Indication: FOETAL EXPOSURE DURING PREGNANCY
     Dosage: MATERNAL DOSE: 3 G
     Route: 064
     Dates: start: 202007, end: 202008
  7. NEORAL [Suspect]
     Active Substance: CYCLOSPORINE
     Indication: FOETAL EXPOSURE DURING PREGNANCY
     Dosage: MATERNAL DOSE: 150 MG
     Route: 064
     Dates: start: 20200624
  8. NEORAL [Suspect]
     Active Substance: CYCLOSPORINE
     Dosage: MATERNAL DOSE: TAPERED
     Route: 064
  9. PREDNISOLONE. [Concomitant]
     Active Substance: PREDNISOLONE
     Indication: FOETAL EXPOSURE DURING PREGNANCY
     Dosage: MATERNAL DOSE: 5 MG
     Route: 064
  10. PREDNISOLONE. [Concomitant]
     Active Substance: PREDNISOLONE
     Dosage: MATERNAL DOSE: TAPERED
     Route: 064
     Dates: end: 202011

REACTIONS (5)
  - Foetal exposure during pregnancy [Unknown]
  - Staphylococcal infection [Recovered/Resolved]
  - Inflammation [Recovering/Resolving]
  - Oxygen saturation abnormal [Recovered/Resolved]
  - Low birth weight baby [Recovered/Resolved]
